FAERS Safety Report 8217972-X (Version None)
Quarter: 2012Q1

REPORT INFORMATION
  Report Type: 
  Country: None (occurrence: None)
  Receive Date: 20120319
  Receipt Date: 20120312
  Transmission Date: 20120608
  Serious: Yes (Other)
  Sender: FDA-Public Use
  Company Number: IE-PFIZER INC-2012064700

PATIENT
  Age: 79 Year
  Sex: Female

DRUGS (1)
  1. SULFASALAZINE [Suspect]
     Indication: CROHN'S DISEASE
     Dosage: 500 MG, 3X/DAY

REACTIONS (1)
  - RENAL FAILURE [None]
